FAERS Safety Report 12978166 (Version 3)
Quarter: 2016Q4

REPORT INFORMATION
  Report Type: Spontaneous
  Country: US (occurrence: US)
  Receive Date: 20161128
  Receipt Date: 20161207
  Transmission Date: 20170207
  Serious: No
  Sender: FDA-Public Use
  Company Number: US-BAYER-2016-224632

PATIENT
  Age: 96 Year
  Sex: Male
  Weight: 74.38 kg

DRUGS (2)
  1. LYRICA [Concomitant]
     Active Substance: PREGABALIN
  2. MIRALAX [Suspect]
     Active Substance: POLYETHYLENE GLYCOL 3350
     Indication: INTESTINAL OBSTRUCTION
     Dosage: 3 DF, QD
     Route: 048
     Dates: start: 20161121, end: 20161123

REACTIONS (3)
  - Product use issue [None]
  - Off label use [None]
  - Expired product administered [None]

NARRATIVE: CASE EVENT DATE: 20161121
